FAERS Safety Report 9300355 (Version 1)
Quarter: 2012Q4

REPORT INFORMATION
  Report Type: Spontaneous
  Country: US (occurrence: None)
  Receive Date: 20121005
  Receipt Date: 20121005
  Transmission Date: 20130627
  Serious: Yes (Life-Threatening, Hospitalization)
  Sender: FDA-Public Use
  Company Number: 1438905

PATIENT
  Age: 2 Year
  Sex: Female

DRUGS (2)
  1. VINCRISTINE SULFATE [Suspect]
     Indication: HEPATOBLASTOMA
     Route: 042
  2. SODIUM CHLORIDE [Concomitant]

REACTIONS (4)
  - Cardiac arrest [None]
  - Convulsion [None]
  - Muscular weakness [None]
  - Gait disturbance [None]
